FAERS Safety Report 9956570 (Version 2)
Quarter: 2014Q1

REPORT INFORMATION
  Report Type: Report from Study
  Country: US (occurrence: US)
  Receive Date: 20140304
  Receipt Date: 20140304
  Transmission Date: 20141002
  Serious: No
  Sender: FDA-Public Use
  Company Number: US-ABBVIE-13P-163-1083372-00

PATIENT
  Age: 23 Year
  Sex: Male

DRUGS (9)
  1. HUMIRA [Suspect]
     Indication: CROHN^S DISEASE
     Dosage: LOADNG DOSE
     Dates: start: 20130425
  2. VICODIN [Concomitant]
     Indication: PAIN
     Dosage: 1-2 TABLETS Q 4 TO 6 HOURS: 10/325MG
  3. VICODIN [Concomitant]
     Dosage: 2 TABLETS EVERY 4 TO 6 HOURS: 7.5MG/325
  4. MIRALAX [Concomitant]
     Indication: CONSTIPATION
  5. BENTYL [Concomitant]
     Indication: ABDOMINAL PAIN UPPER
     Dosage: EVERY 4 TO 6 HOURS AS NEEDED
  6. DILAUDID [Concomitant]
     Indication: PAIN
     Dosage: EVERY 2 HOURS AS NEEDED
     Route: 042
  7. PROBIOTICS [Concomitant]
     Indication: GASTRIC DISORDER
     Route: 042
  8. NUTRITION [Concomitant]
     Indication: PRODUCT USED FOR UNKNOWN INDICATION
     Route: 042
  9. LEVSIN [Concomitant]
     Indication: ABDOMINAL PAIN UPPER
     Route: 060

REACTIONS (12)
  - Feeling abnormal [Not Recovered/Not Resolved]
  - Somnolence [Not Recovered/Not Resolved]
  - Vomiting [Not Recovered/Not Resolved]
  - Fatigue [Not Recovered/Not Resolved]
  - Abdominal pain upper [Not Recovered/Not Resolved]
  - Malaise [Not Recovered/Not Resolved]
  - Sneezing [Not Recovered/Not Resolved]
  - Pain [Not Recovered/Not Resolved]
  - Gastric disorder [Not Recovered/Not Resolved]
  - Injection site pain [Not Recovered/Not Resolved]
  - Discomfort [Not Recovered/Not Resolved]
  - Arthralgia [Not Recovered/Not Resolved]
